FAERS Safety Report 5321915-6 (Version None)
Quarter: 2007Q2

REPORT INFORMATION
  Report Type: 
  Country: None (occurrence: None)
  Receive Date: 20070508
  Receipt Date: 20070508
  Transmission Date: 20071010
  Serious: Yes (Life-Threatening, Hospitalization, Disabling)
  Sender: FDA-Public Use
  Company Number: None

PATIENT
  Age: 58 Year
  Sex: Male
  Weight: 75 kg

DRUGS (8)
  1. TRUVADA [Suspect]
     Indication: HIV INFECTION
     Dosage: 1 TAB DAILY PO
     Route: 048
  2. MELOXICAM [Suspect]
     Indication: PAIN IN EXTREMITY
     Dosage: 15MG DAILY PO
     Route: 048
  3. ATENOLOL [Concomitant]
  4. TRICOR [Concomitant]
  5. MELOXICAM [Concomitant]
  6. NORVIR [Concomitant]
  7. REYATAZ [Concomitant]
  8. PRED FORTE [Concomitant]

REACTIONS (4)
  - DIALYSIS [None]
  - NEPHRITIS INTERSTITIAL [None]
  - RENAL FAILURE [None]
  - RENAL TUBULAR DISORDER [None]
